FAERS Safety Report 19313231 (Version 3)
Quarter: 2021Q2

REPORT INFORMATION
  Report Type: Report from Study
  Country: US (occurrence: US)
  Receive Date: 20210527
  Receipt Date: 20210625
  Transmission Date: 20210717
  Serious: Yes (Hospitalization, Other)
  Sender: FDA-Public Use
  Company Number: US-GILEAD-2021-0522511

PATIENT
  Age: 25 Year
  Sex: Female

DRUGS (17)
  1. KEPPRA XR [Concomitant]
     Active Substance: LEVETIRACETAM
  2. ZENPEP [Concomitant]
     Active Substance: PANCRELIPASE AMYLASE\PANCRELIPASE LIPASE\PANCRELIPASE PROTEASE
  3. COMPLETE [CHLORHEXIDINE] [Concomitant]
  4. MINOCYCLINE [Concomitant]
     Active Substance: MINOCYCLINE HYDROCHLORIDE
  5. CITALOPRAM [Concomitant]
     Active Substance: CITALOPRAM HYDROBROMIDE
  6. GABAPENTIN. [Concomitant]
     Active Substance: GABAPENTIN
  7. TOBI PODHALER [Concomitant]
     Active Substance: TOBRAMYCIN
  8. AZTREONAM LYSINE [Suspect]
     Active Substance: AZTREONAM LYSINE
     Indication: CYSTIC FIBROSIS
     Dosage: 75 MG, TID, 28 DAYS ON AND 28 DAYS OFF
     Route: 055
     Dates: start: 20200925
  9. SYMDEKO [Concomitant]
     Active Substance: IVACAFTOR\TEZACAFTOR
  10. IPRATROPIUM [Concomitant]
     Active Substance: IPRATROPIUM
  11. SYMBICORT [Concomitant]
     Active Substance: BUDESONIDE\FORMOTEROL FUMARATE DIHYDRATE
  12. PULMOZYME [Concomitant]
     Active Substance: DORNASE ALFA
  13. TRIKAFTA [Concomitant]
     Active Substance: ELEXACAFTOR\IVACAFTOR\TEZACAFTOR
  14. E KEPPRA [Concomitant]
     Active Substance: LEVETIRACETAM
  15. IRON [Concomitant]
     Active Substance: IRON
  16. ZANTAC [Concomitant]
     Active Substance: RANITIDINE HYDROCHLORIDE
  17. KITABIS PAK [Concomitant]
     Active Substance: TOBRAMYCIN

REACTIONS (2)
  - Cystic fibrosis [Not Recovered/Not Resolved]
  - Fungal infection [Not Recovered/Not Resolved]

NARRATIVE: CASE EVENT DATE: 20210419
